FAERS Safety Report 18975868 (Version 1)
Quarter: 2021Q1

REPORT INFORMATION
  Report Type: Spontaneous
  Country: JP (occurrence: JP)
  Receive Date: 20210306
  Receipt Date: 20210306
  Transmission Date: 20210420
  Serious: Yes (Other)
  Sender: FDA-Public Use
  Company Number: JP-AUROBINDO-AUR-APL-2019-047646

PATIENT
  Age: 60 Year
  Sex: Male

DRUGS (15)
  1. ZEVALIN [Suspect]
     Active Substance: IBRITUMOMAB TIUXETAN
     Dosage: 11.1 MBQ/KG, SINGLE
     Route: 042
     Dates: start: 20101224, end: 20101224
  2. RENAGEL [Suspect]
     Active Substance: SEVELAMER HYDROCHLORIDE
     Indication: HYPERPHOSPHATAEMIA
     Dosage: UNK
     Route: 048
  3. ALLELOCK [Suspect]
     Active Substance: OLOPATADINE HYDROCHLORIDE
     Indication: PRURITUS
     Dosage: UNK
     Route: 048
  4. ZEVALIN [Suspect]
     Active Substance: IBRITUMOMAB TIUXETAN
     Dosage: 128.8 MBQ, SINGLE
     Route: 042
  5. ARTIST [Suspect]
     Active Substance: CARVEDILOL
     Indication: HYPERTENSION
     Dosage: UNK
     Route: 048
  6. LENDORMIN [Suspect]
     Active Substance: BROTIZOLAM
     Indication: INSOMNIA
     Dosage: UNK
     Route: 048
  7. PROMAC [Suspect]
     Active Substance: NITROFURANTOIN
     Indication: GASTRIC ULCER
     Dosage: UNK
     Route: 048
  8. ZEVALIN [Suspect]
     Active Substance: IBRITUMOMAB TIUXETAN
     Indication: FOLLICLE CENTRE LYMPHOMA, FOLLICULAR GRADE I, II, III
     Dosage: 128.8 MBQ, SINGLE
     Route: 042
     Dates: start: 20101207, end: 20101207
  9. RITUXIMAB. [Suspect]
     Active Substance: RITUXIMAB
     Indication: FOLLICLE CENTRE LYMPHOMA, FOLLICULAR GRADE I, II, III
     Dosage: 250 MG/M2, SINGLE
     Route: 065
     Dates: start: 20101207, end: 20101207
  10. TAKEPRON [Suspect]
     Active Substance: LANSOPRAZOLE
     Indication: GASTRIC ULCER
     Dosage: UNK
     Route: 048
  11. RITUXIMAB. [Suspect]
     Active Substance: RITUXIMAB
     Dosage: 250 MG/M2, SINGLE
     Route: 065
     Dates: start: 20101224, end: 20101224
  12. INDIUM (111 IN) [Suspect]
     Active Substance: INDIUM IN-111
     Indication: B-CELL LYMPHOMA
     Dosage: 128.8 MEGABECQUEREL, UNK
     Route: 042
  13. ERYTHROPOIETIN HUMAN [Concomitant]
     Active Substance: ERYTHROPOIETIN
     Indication: NEPHROGENIC ANAEMIA
     Dosage: UNK (UNK UNK, TIW)
     Route: 065
  14. PANALDINE [Suspect]
     Active Substance: TICLOPIDINE HYDROCHLORIDE
     Indication: ANGINA PECTORIS
     Dosage: UNK
     Route: 048
  15. YTTRIUM (90 Y) [Suspect]
     Active Substance: YTTRIUM CHLORIDE Y-90
     Indication: B-CELL LYMPHOMA RECURRENT
     Dosage: 11.1 MEGABECQUEREL, UNK
     Route: 042
     Dates: start: 20101224

REACTIONS (5)
  - Anaemia [Unknown]
  - Lymphopenia [Unknown]
  - Dialysis hypotension [Recovering/Resolving]
  - Neutropenia [Recovered/Resolved]
  - Thrombocytopenia [Unknown]

NARRATIVE: CASE EVENT DATE: 20101227
